FAERS Safety Report 7949737-8 (Version None)
Quarter: 2011Q4

REPORT INFORMATION
  Report Type: 
  Country: None (occurrence: None)
  Receive Date: 20111130
  Receipt Date: 20111122
  Transmission Date: 20120403
  Serious: Yes (Other)
  Sender: FDA-Public Use
  Company Number: FR-PFIZER INC-2011285065

PATIENT
  Age: 20 Year
  Sex: Female

DRUGS (2)
  1. RIFADIN [Suspect]
     Dosage: 600 MG, 1X/DAY
     Route: 048
     Dates: start: 20110418, end: 20110601
  2. CLINDAMYCIN HCL [Suspect]
     Dosage: 300 MG, 2X/DAY
     Route: 048
     Dates: start: 20110418, end: 20110601

REACTIONS (1)
  - CYTOLYTIC HEPATITIS [None]
